FAERS Safety Report 8798346 (Version 4)
Quarter: 2014Q1

REPORT INFORMATION
  Report Type: Report from Study
  Country: BR (occurrence: BR)
  Receive Date: 20120920
  Receipt Date: 20140206
  Transmission Date: 20141002
  Serious: Yes (Hospitalization, Other)
  Sender: FDA-Public Use
  Company Number: BR-ROCHE-1118627

PATIENT
  Sex: Female
  Weight: 57 kg

DRUGS (12)
  1. ACTEMRA [Suspect]
     Indication: RHEUMATOID ARTHRITIS
     Route: 042
     Dates: start: 20110627
  2. ACTEMRA [Suspect]
     Route: 065
     Dates: start: 20120620
  3. VASODIP [Concomitant]
  4. ATENOLOL [Concomitant]
  5. SIMVASTATIN [Concomitant]
  6. CAPTOPRIL [Concomitant]
  7. ACTONEL [Concomitant]
  8. FOLIC ACID [Concomitant]
  9. METHOTREXATE [Concomitant]
  10. PREDNISONE [Concomitant]
  11. DEPURA [Concomitant]
     Indication: RHEUMATOID ARTHRITIS
  12. OMEPRAZOLE [Concomitant]

REACTIONS (6)
  - Arthropathy [Recovered/Resolved]
  - Tendon rupture [Recovered/Resolved]
  - Finger deformity [Not Recovered/Not Resolved]
  - Nodule [Not Recovered/Not Resolved]
  - Exostosis [Not Recovered/Not Resolved]
  - Glucose tolerance impaired [Not Recovered/Not Resolved]
